FAERS Safety Report 4190088 (Version 3)
Quarter: 2017Q3

REPORT INFORMATION
  Report Type: Spontaneous
  Country: JP (occurrence: JP)
  Receive Date: 20040813
  Receipt Date: 20170830
  Transmission Date: 20171128
  Serious: Yes (Death, Life-Threatening)
  Sender: FDA-Public Use
  Company Number: JP-ROCHE-376692

PATIENT
  Age: 54 Year
  Sex: Female

DRUGS (4)
  1. LOPERAMIDE HYDROCHLORIDE. [Concomitant]
     Active Substance: LOPERAMIDE HYDROCHLORIDE
     Indication: GASTROENTERITIS BACTERIAL
     Route: 048
  2. ROCEPHIN [Suspect]
     Active Substance: CEFTRIAXONE SODIUM
     Indication: GASTROENTERITIS BACTERIAL
     Route: 042
     Dates: start: 20040507, end: 20040508
  3. CRAVIT [Concomitant]
     Active Substance: LEVOFLOXACIN
     Indication: GASTROENTERITIS BACTERIAL
     Route: 048
  4. INSULIN [Concomitant]
     Active Substance: INSULIN NOS
     Dosage: 20 IU MORNING?30 IU EVENING
     Route: 058

REACTIONS (3)
  - Multiple organ dysfunction syndrome [Fatal]
  - Superinfection [Not Recovered/Not Resolved]
  - Pathogen resistance [Not Recovered/Not Resolved]

NARRATIVE: CASE EVENT DATE: 2004
